FAERS Safety Report 11890620 (Version 2)
Quarter: 2016Q1

REPORT INFORMATION
  Report Type: Spontaneous
  Country: IT (occurrence: IT)
  Receive Date: 20160105
  Receipt Date: 20160119
  Transmission Date: 20160526
  Serious: Yes (Other)
  Sender: FDA-Public Use
  Company Number: PHHY2015IT170241

PATIENT
  Age: 23 Year
  Sex: Female

DRUGS (1)
  1. CEFTRIAXONE. [Suspect]
     Active Substance: CEFTRIAXONE
     Indication: APPENDICITIS
     Dosage: 2 G, QD
     Route: 042
     Dates: start: 20151125, end: 20151125

REACTIONS (5)
  - Cough [Recovered/Resolved]
  - Lacrimation disorder [Recovered/Resolved]
  - Vasodilatation [Recovered/Resolved]
  - Rhinorrhoea [Recovered/Resolved]
  - Dyspnoea [Recovered/Resolved]

NARRATIVE: CASE EVENT DATE: 20151125
